FAERS Safety Report 9089495 (Version 1)
Quarter: 2013Q1

REPORT INFORMATION
  Report Type: Report from Study
  Country: US (occurrence: US)
  Receive Date: 20130201
  Receipt Date: 20130201
  Transmission Date: 20140127
  Serious: No
  Sender: FDA-Public Use
  Company Number: US-ABBOTT-12P-163-1019498-00

PATIENT
  Age: 35 Year
  Sex: Female

DRUGS (7)
  1. HUMIRA [Suspect]
     Indication: CROHN^S DISEASE
     Dosage: LOADING DOSE
     Dates: start: 20121130
  2. SPIRONOLACTONE [Concomitant]
     Indication: ACNE
  3. METFORMIN [Concomitant]
     Indication: POLYCYSTIC OVARIES
  4. PHENTERMINE [Concomitant]
     Indication: WEIGHT DECREASED
     Dosage: 37.5 MG DAILY
  5. LIALDA [Concomitant]
     Indication: CROHN^S DISEASE
     Dosage: 1.2 GM 4 TABLETS DAILY
  6. RELPAX [Concomitant]
     Indication: MIGRAINE
  7. ALBUTEROL [Concomitant]
     Indication: ASTHMA EXERCISE INDUCED
     Dosage: INHALER

REACTIONS (2)
  - Lymphadenopathy [Not Recovered/Not Resolved]
  - Lymph node pain [Not Recovered/Not Resolved]
